FAERS Safety Report 5246685-1 (Version None)
Quarter: 2007Q1

REPORT INFORMATION
  Report Type: 
  Country: None (occurrence: None)
  Receive Date: 20070226
  Receipt Date: 20070213
  Transmission Date: 20070707
  Serious: Yes (Hospitalization)
  Sender: FDA-Public Use
  Company Number: JP-NOVOPROD-260823

PATIENT
  Age: 80 Year
  Sex: Female

DRUGS (2)
  1. PENFILL 30R CHU [Suspect]
     Indication: DIABETES MELLITUS
     Dates: end: 20051101
  2. ORAL ANTIDIABETICS [Concomitant]
     Indication: DIABETES MELLITUS
     Dates: start: 20051101

REACTIONS (2)
  - ANTI-INSULIN ANTIBODY INCREASED [None]
  - BLOOD GLUCOSE FLUCTUATION [None]
